FAERS Safety Report 10749018 (Version 3)
Quarter: 2015Q3

REPORT INFORMATION
  Report Type: Spontaneous
  Country: US (occurrence: US)
  Receive Date: 20150129
  Receipt Date: 20150721
  Transmission Date: 20151125
  Serious: Yes (Death, Hospitalization, Other)
  Sender: FDA-Public Use
  Company Number: US-009507513-1501USA011733

PATIENT
  Sex: Male
  Weight: 113.38 kg

DRUGS (1)
  1. JANUVIA [Suspect]
     Active Substance: SITAGLIPTIN PHOSPHATE
     Indication: TYPE 2 DIABETES MELLITUS
     Dosage: 100 MG, QD
     Route: 048
     Dates: start: 2012, end: 2013

REACTIONS (25)
  - Metastases to liver [Unknown]
  - Dehydration [Unknown]
  - Acute kidney injury [Unknown]
  - Hepatic cirrhosis [Not Recovered/Not Resolved]
  - Insulin-requiring type 2 diabetes mellitus [Unknown]
  - Schizophrenia [Unknown]
  - Pancreatic carcinoma metastatic [Fatal]
  - Prostatomegaly [Unknown]
  - Hypertension [Unknown]
  - Decreased appetite [Unknown]
  - Renal failure [Unknown]
  - Arthritis [Unknown]
  - Failure to thrive [Unknown]
  - Metastases to spleen [Unknown]
  - Metastases to stomach [Unknown]
  - Metastases to lymph nodes [Unknown]
  - Cholelithiasis [Unknown]
  - Coagulopathy [Unknown]
  - Hyperlipidaemia [Not Recovered/Not Resolved]
  - Pancreatitis [Not Recovered/Not Resolved]
  - Lymphadenopathy [Unknown]
  - Nausea [Unknown]
  - Acute hepatic failure [Unknown]
  - Feeding disorder [Unknown]
  - Asthenia [Unknown]

NARRATIVE: CASE EVENT DATE: 201212
